FAERS Safety Report 8832915 (Version 1)
Quarter: 2012Q4

REPORT INFORMATION
  Report Type: 
  Country: DE (occurrence: DE)
  Receive Date: 20121010
  Receipt Date: 20121010
  Transmission Date: 20130627
  Serious: Yes (Other)
  Sender: FDA-Public Use
  Company Number: DE-ELI_LILLY_AND_COMPANY-DE201207005834

PATIENT
  Age: 78 Year
  Sex: Female

DRUGS (6)
  1. FORSTEO [Suspect]
     Dosage: UNK, unknown
     Route: 058
     Dates: start: 20120416, end: 20120719
  2. PREDNISONE [Concomitant]
     Dosage: 5 mg, unknown
  3. CALCIUM [Concomitant]
     Dosage: UNK, unknown
  4. VITAMIN D NOS [Concomitant]
     Dosage: UNK, unknown
  5. VERTIGOHEEL [Concomitant]
     Dosage: UNK, unknown
  6. ISOKET RETARD [Concomitant]
     Dosage: UNK, unknown

REACTIONS (4)
  - Loss of consciousness [Recovered/Resolved]
  - Neck pain [Recovered/Resolved]
  - Dizziness [Recovered/Resolved]
  - Feeling abnormal [Recovered/Resolved]
